FAERS Safety Report 13899512 (Version 2)
Quarter: 2017Q3

REPORT INFORMATION
  Report Type: Report from Study
  Country: US (occurrence: US)
  Receive Date: 20170824
  Receipt Date: 20170828
  Transmission Date: 20171127
  Serious: Yes (Death, Other)
  Sender: FDA-Public Use
  Company Number: US-PFIZER INC-2017366996

PATIENT

DRUGS (3)
  1. MITOXANTRONE HCL [Suspect]
     Active Substance: MITOXANTRONE HYDROCHLORIDE
     Indication: PROSTATE CANCER
     Dosage: UNK, CYCLIC
  2. RILOTUMUMAB [Suspect]
     Active Substance: RILOTUMUMAB
     Indication: PROSTATE CANCER
     Dosage: 7.5 MG/KG, EVERY 3 WEEKS
     Route: 042
  3. PREDNISONE. [Suspect]
     Active Substance: PREDNISONE
     Indication: PROSTATE CANCER
     Dosage: UNK, CYCLIC

REACTIONS (1)
  - Septic shock [Fatal]
